FAERS Safety Report 20974820 (Version 1)
Quarter: 2022Q2

REPORT INFORMATION
  Report Type: Spontaneous
  Country: US (occurrence: US)
  Receive Date: 20220617
  Receipt Date: 20220617
  Transmission Date: 20220721
  Serious: Yes (Other)
  Sender: FDA-Public Use
  Company Number: US-Shilpa Medicare Limited-SML-US-2022-00663

PATIENT
  Age: 62 Year
  Sex: Female

DRUGS (3)
  1. ZOLEDRONIC ACID [Suspect]
     Active Substance: ZOLEDRONIC ACID
     Indication: Thyroid cancer metastatic
  2. LENVATINIB [Suspect]
     Active Substance: LENVATINIB
     Indication: Thyroid cancer metastatic
  3. LEVOTHYROXINE [Concomitant]
     Active Substance: LEVOTHYROXINE
     Indication: Post procedural hypothyroidism
     Dosage: SUPPRESSIVE DOSE

REACTIONS (1)
  - Drug ineffective [Unknown]
